FAERS Safety Report 23665390 (Version 1)
Quarter: 2024Q1

REPORT INFORMATION
  Report Type: Report from Study
  Country: US (occurrence: US)
  Receive Date: 20240323
  Receipt Date: 20240323
  Transmission Date: 20240410
  Serious: Yes (Hospitalization)
  Sender: FDA-Public Use
  Company Number: US-ABBVIE-5545456

PATIENT
  Age: 62 Year
  Sex: Female

DRUGS (2)
  1. SKYRIZI [Suspect]
     Active Substance: RISANKIZUMAB-RZAA
     Indication: Crohn^s disease
     Route: 042
     Dates: start: 20231026
  2. SKYRIZI [Suspect]
     Active Substance: RISANKIZUMAB-RZAA
     Indication: Crohn^s disease
     Route: 042
     Dates: start: 20230929

REACTIONS (5)
  - Kidney infection [Not Recovered/Not Resolved]
  - Myalgia [Recovering/Resolving]
  - Fatigue [Recovered/Resolved]
  - Urinary tract infection [Not Recovered/Not Resolved]
  - Chromaturia [Recovering/Resolving]

NARRATIVE: CASE EVENT DATE: 20231201
